FAERS Safety Report 5270210-2 (Version None)
Quarter: 2007Q1

REPORT INFORMATION
  Report Type: 
  Country: None (occurrence: None)
  Receive Date: 20070320
  Receipt Date: 20070308
  Transmission Date: 20070707
  Serious: Yes (Death, Hospitalization, Other)
  Sender: FDA-Public Use
  Company Number: GB-SHR-GB-2006-012514

PATIENT
  Sex: Male

DRUGS (6)
  1. GADOVIST 1.0 [Suspect]
     Indication: NUCLEAR MAGNETIC RESONANCE IMAGING
     Dates: start: 20050421, end: 20050421
  2. ULTRAVIST (PHARMACY BULK) [Suspect]
     Dates: start: 20050418, end: 20050418
  3. NALOXONE [Suspect]
     Dates: start: 20050628, end: 20050628
  4. MAGNEVIST [Suspect]
     Route: 042
  5. GASTROGRAFIN [Suspect]
  6. VESIPAQUE [Suspect]

REACTIONS (6)
  - DIABETES MELLITUS INADEQUATE CONTROL [None]
  - INTESTINAL INFARCTION [None]
  - MULTI-ORGAN FAILURE [None]
  - MYOCARDIAL ISCHAEMIA [None]
  - NEPHROPATHY [None]
  - SLEEP DISORDER [None]
